FAERS Safety Report 25712099 (Version 1)
Quarter: 2025Q3

REPORT INFORMATION
  Report Type: Spontaneous
  Country: MX (occurrence: MX)
  Receive Date: 20250821
  Receipt Date: 20250821
  Transmission Date: 20251020
  Serious: Yes (Other)
  Sender: Alora Pharma
  Company Number: MX-ACELLA PHARMACEUTICALS, LLC-2025ALO02438

PATIENT
  Age: 4 Decade
  Sex: Female

DRUGS (1)
  1. PHENYTOIN SODIUM [Suspect]
     Active Substance: PHENYTOIN SODIUM
     Indication: Seizure
     Dosage: 300 MG, 1X/DAY

REACTIONS (2)
  - Seizure [Recovered/Resolved]
  - Seizure cluster [Recovered/Resolved]
